FAERS Safety Report 5022897-7 (Version None)
Quarter: 2006Q2

REPORT INFORMATION
  Report Type: 
  Country: None (occurrence: None)
  Receive Date: 20060426
  Receipt Date: 20060113
  Transmission Date: 20061013
  Serious: Yes (Other)
  Sender: FDA-Public Use
  Company Number: 2006008902

PATIENT
  Age: 65 Year
  Sex: Male
  Weight: 77.1115 kg

DRUGS (8)
  1. LYRICA [Suspect]
     Indication: NEURALGIA
     Dosage: 300 MG (150 MG, 2 IN 1 D)
     Dates: start: 20051018
  2. LOTREL [Concomitant]
  3. HYDROCHLOROTHIAZIDE [Concomitant]
  4. ASPIRIN [Concomitant]
  5. MULTIVITAMIN [Concomitant]
  6. VITAMIN C (VITAMIN C) [Concomitant]
  7. IRON (IRON) [Concomitant]
  8. ALL OTHER THERAPEUTIC PRODUCTS( ALL OTHER THERAPEUTIC PRODUCTS) [Concomitant]

REACTIONS (1)
  - VISUAL ACUITY REDUCED [None]
